FAERS Safety Report 8900929 (Version 2)
Quarter: 2013Q1

REPORT INFORMATION
  Report Type: Report from Study
  Country: US (occurrence: US)
  Receive Date: 20121109
  Receipt Date: 20130108
  Transmission Date: 20140127
  Serious: Yes (Hospitalization, Other)
  Sender: FDA-Public Use
  Company Number: US-ACTELION-A-US2012-73934

PATIENT
  Age: 33 Year
  Sex: Male

DRUGS (6)
  1. TRACLEER [Suspect]
     Indication: PULMONARY ARTERIAL HYPERTENSION
     Dosage: 62.5 MG, UNK
     Route: 048
     Dates: start: 20120812, end: 20121017
  2. TRACLEER [Suspect]
     Dosage: 62.5 MG, BID
     Route: 048
     Dates: start: 201006
  3. TRACLEER [Suspect]
     Dosage: 125 MG, UNK
     Route: 048
     Dates: start: 20110825
  4. COUMADIN [Concomitant]
  5. SILDENAFIL [Concomitant]
  6. ASPIRIN [Concomitant]

REACTIONS (2)
  - Pleural effusion [Recovered/Resolved]
  - Aspiration pleural cavity [Recovered/Resolved]
